FAERS Safety Report 11617233 (Version 1)
Quarter: 2015Q4

REPORT INFORMATION
  Report Type: Spontaneous
  Country: FR (occurrence: FR)
  Receive Date: 20151009
  Receipt Date: 20151009
  Transmission Date: 20160304
  Serious: Yes (Disabling, Other)
  Sender: FDA-Public Use
  Company Number: FR-BRISTOL-MYERS SQUIBB COMPANY-BMS-2015-065893

PATIENT
  Age: 67 Year
  Sex: Female

DRUGS (3)
  1. LUCENTIS [Suspect]
     Active Substance: RANIBIZUMAB
     Indication: VISUAL IMPAIRMENT
     Dosage: 0.5 MG, UNK
     Route: 065
     Dates: start: 20150220
  2. SOVALDI [Suspect]
     Active Substance: SOFOSBUVIR
     Indication: HEPATITIS C
     Dosage: 400 UNK, UNK
     Route: 065
     Dates: start: 201412, end: 201504
  3. DAKLINZA [Suspect]
     Active Substance: DACLATASVIR
     Indication: HEPATITIS C
     Dosage: 60 MG, QD
     Route: 065
     Dates: start: 201412, end: 201504

REACTIONS (4)
  - General physical health deterioration [Unknown]
  - Weight decreased [Unknown]
  - Pyrexia [Unknown]
  - Lymphoma [Recovering/Resolving]

NARRATIVE: CASE EVENT DATE: 20150410
